FAERS Safety Report 5898522-X (Version None)
Quarter: 2008Q3

REPORT INFORMATION
  Report Type: 
  Country: None (occurrence: None)
  Receive Date: 20080925
  Receipt Date: 20071227
  Transmission Date: 20090109
  Serious: No
  Sender: FDA-Public Use
  Company Number: A0700592A

PATIENT
  Age: 65 Year
  Sex: Male

DRUGS (3)
  1. WELLBUTRIN XL [Suspect]
     Indication: DEPRESSION
     Dosage: 150MG PER DAY
     Route: 048
     Dates: start: 20060101
  2. LEXAPRO [Concomitant]
  3. CYMBALTA [Concomitant]

REACTIONS (1)
  - HYPERHIDROSIS [None]
